FAERS Safety Report 20489765 (Version 3)
Quarter: 2023Q1

REPORT INFORMATION
  Report Type: Report from Study
  Country: JP (occurrence: JP)
  Receive Date: 20220218
  Receipt Date: 20230217
  Transmission Date: 20230418
  Serious: Yes (Other)
  Sender: FDA-Public Use
  Company Number: JP-ViiV Healthcare Limited-JP2022JPN028020

PATIENT

DRUGS (8)
  1. DOLUTEGRAVIR SODIUM\LAMIVUDINE [Suspect]
     Active Substance: DOLUTEGRAVIR SODIUM\LAMIVUDINE
     Indication: HIV infection
     Dosage: 1 DF, 1D
     Dates: start: 20210112
  2. LEVOCETIRIZINE DIHYDROCHLORIDE [Concomitant]
     Active Substance: LEVOCETIRIZINE DIHYDROCHLORIDE
     Dosage: UNK
     Dates: start: 20210308, end: 20210407
  3. LEVOCETIRIZINE DIHYDROCHLORIDE [Concomitant]
     Active Substance: LEVOCETIRIZINE DIHYDROCHLORIDE
     Dosage: UNK
     Dates: start: 20220304, end: 20220703
  4. ALESION OPHTHALMIC SOLUTION 0.05% [Concomitant]
     Dosage: UNK
     Dates: start: 20210308, end: 20210407
  5. ALESION OPHTHALMIC SOLUTION 0.05% [Concomitant]
     Dosage: UNK
     Dates: start: 20220304, end: 20220703
  6. FLUTICASONE FUROATE [Concomitant]
     Active Substance: FLUTICASONE FUROATE
     Dosage: UNK
     Dates: start: 20210308, end: 20210407
  7. PENTOSAN POLYSULFATE SODIUM [Concomitant]
     Active Substance: PENTOSAN POLYSULFATE SODIUM
     Dosage: UNK
     Dates: start: 20210308, end: 20221205
  8. EPHEDRA SINICA STEM\HERBALS [Concomitant]
     Active Substance: EPHEDRA SINICA STEM\HERBALS
     Dosage: UNK
     Dates: start: 20210607, end: 20210706

REACTIONS (4)
  - Syphilis [Recovering/Resolving]
  - Haemorrhoids [Recovering/Resolving]
  - Seasonal allergy [Recovering/Resolving]
  - Meniere^s disease [Recovering/Resolving]

NARRATIVE: CASE EVENT DATE: 20210424
